FAERS Safety Report 7625500-2 (Version None)
Quarter: 2011Q3

REPORT INFORMATION
  Report Type: 
  Country: None (occurrence: None)
  Receive Date: 20110721
  Receipt Date: 20110713
  Transmission Date: 20111222
  Serious: Yes (Hospitalization, Other)
  Sender: FDA-Public Use
  Company Number: FR-BAYER-2011-062071

PATIENT
  Age: 38 Year
  Sex: Female

DRUGS (5)
  1. YAZ [Suspect]
     Dosage: UNK
     Dates: start: 20110618
  2. PRORHINEL [Concomitant]
     Dosage: UNK
     Dates: start: 20110618
  3. ACETAMINOPHEN [Concomitant]
     Dosage: UNK
     Dates: start: 20110618
  4. IBUPROFEN [Concomitant]
     Dosage: UNK
     Dates: start: 20110618
  5. ZOLMITRIPTAN [Concomitant]
     Indication: MIGRAINE
     Dosage: UNK

REACTIONS (6)
  - ANGIOEDEMA [None]
  - EYELID OEDEMA [None]
  - DYSPHAGIA [None]
  - SWELLING FACE [None]
  - PRURITUS [None]
  - ARTHROPOD BITE [None]
